FAERS Safety Report 15545917 (Version 2)
Quarter: 2018Q4

REPORT INFORMATION
  Report Type: Spontaneous
  Country: FR (occurrence: FR)
  Receive Date: 20181024
  Receipt Date: 20181121
  Transmission Date: 20190205
  Serious: Yes (Disabling, Other)
  Sender: FDA-Public Use
  Company Number: FR-ABBVIE-18K-056-2526357-00

PATIENT
  Age: 26 Year
  Sex: Female
  Weight: 74 kg

DRUGS (4)
  1. IMUREL 50 [Suspect]
     Active Substance: AZATHIOPRINE
     Indication: CROHN^S DISEASE
     Route: 048
     Dates: start: 20180919, end: 201810
  2. HUMIRA [Suspect]
     Active Substance: ADALIMUMAB
     Route: 058
     Dates: start: 201809
  3. IMUREL 50 [Suspect]
     Active Substance: AZATHIOPRINE
     Route: 065
     Dates: start: 201810, end: 201810
  4. HUMIRA [Suspect]
     Active Substance: ADALIMUMAB
     Indication: CROHN^S DISEASE
     Route: 058
     Dates: start: 201609, end: 201808

REACTIONS (9)
  - Type IV hypersensitivity reaction [Recovering/Resolving]
  - Diarrhoea [Recovered/Resolved]
  - Yersinia infection [Recovered/Resolved]
  - Skin plaque [Unknown]
  - Inflammation [Unknown]
  - Crohn^s disease [Recovering/Resolving]
  - Hypoalbuminaemia [Unknown]
  - Erythema nodosum [Recovered/Resolved]
  - Myalgia [Recovered/Resolved]

NARRATIVE: CASE EVENT DATE: 20180830
